FAERS Safety Report 6897157-X (Version None)
Quarter: 2010Q3

REPORT INFORMATION
  Report Type: 
  Country: None (occurrence: None)
  Receive Date: 20100802
  Receipt Date: 20070321
  Transmission Date: 20110219
  Serious: Yes (Hospitalization)
  Sender: FDA-Public Use
  Company Number: US-PFIZER INC-2007024482

PATIENT
  Sex: Female

DRUGS (1)
  1. LYRICA [Suspect]
     Dates: end: 20060101

REACTIONS (1)
  - SKIN LESION [None]
